FAERS Safety Report 14834496 (Version 2)
Quarter: 2018Q2

REPORT INFORMATION
  Report Type: Report from Study
  Country: FR (occurrence: FR)
  Receive Date: 20180501
  Receipt Date: 20180517
  Transmission Date: 20180711
  Serious: Yes (Hospitalization, Other)
  Sender: FDA-Public Use
  Company Number: FR-APOPHARMA INC-2018AP012051

PATIENT
  Age: 62 Year
  Sex: Male
  Weight: 90 kg

DRUGS (5)
  1. VIAGRA [Concomitant]
     Active Substance: SILDENAFIL CITRATE
     Indication: ERECTILE DYSFUNCTION
     Dosage: UNK, PRN
     Route: 048
     Dates: start: 2015
  2. DEFERIPRONE [Suspect]
     Active Substance: DEFERIPRONE
     Indication: PARKINSON^S DISEASE
     Dosage: 900 MG, BID
     Route: 048
     Dates: start: 20180222, end: 20180420
  3. SIFROL [Concomitant]
     Active Substance: PRAMIPEXOLE
     Indication: PARKINSON^S DISEASE
     Dosage: 0.52 MG, QD
     Route: 048
     Dates: start: 20160725
  4. SIFROL [Concomitant]
     Active Substance: PRAMIPEXOLE
     Dosage: 1.05 MG, QD
     Route: 048
     Dates: start: 20150915
  5. AZILECT [Concomitant]
     Active Substance: RASAGILINE MESYLATE
     Indication: PARKINSON^S DISEASE
     Dosage: 1 MG, QD
     Route: 048
     Dates: start: 20151028

REACTIONS (3)
  - Renal failure [Recovered/Resolved]
  - Congenital cystic kidney disease [Recovered/Resolved]
  - Renal colic [Recovered/Resolved]

NARRATIVE: CASE EVENT DATE: 20180419
